FAERS Safety Report 10293841 (Version 1)
Quarter: 2014Q3

REPORT INFORMATION
  Report Type: Spontaneous
  Country: US (occurrence: US)
  Receive Date: 20140710
  Receipt Date: 20140710
  Transmission Date: 20150326
  Serious: No
  Sender: FDA-Public Use
  Company Number: US-PURDUE-USA-2013-0109152

PATIENT
  Age: 48 Year
  Sex: Male

DRUGS (1)
  1. BUTRANS [Suspect]
     Active Substance: BUPRENORPHINE
     Indication: PAIN
     Dosage: 10 MCG/HR, WEEKLY
     Route: 062
     Dates: start: 20131107, end: 20131126

REACTIONS (14)
  - Application site erythema [Not Recovered/Not Resolved]
  - Product adhesion issue [None]
  - Somnolence [Not Recovered/Not Resolved]
  - Wrong technique in drug usage process [Not Recovered/Not Resolved]
  - Incorrect drug administration duration [Not Recovered/Not Resolved]
  - Inappropriate schedule of drug administration [Not Recovered/Not Resolved]
  - Vomiting [Not Recovered/Not Resolved]
  - Therapeutic response prolonged [Unknown]
  - Drug effect increased [Not Recovered/Not Resolved]
  - Dizziness [Recovered/Resolved]
  - Tremor [Unknown]
  - Application site pain [Not Recovered/Not Resolved]
  - Hyperhidrosis [Unknown]
  - Medication residue present [Not Recovered/Not Resolved]

NARRATIVE: CASE EVENT DATE: 20131126
